FAERS Safety Report 4927549-7 (Version None)
Quarter: 2006Q1

REPORT INFORMATION
  Report Type: 
  Country: None (occurrence: None)
  Receive Date: 20060228
  Receipt Date: 20050930
  Transmission Date: 20060701
  Serious: Yes (Hospitalization, Other)
  Sender: FDA-Public Use
  Company Number: PR-MERCK-0510USA01668

PATIENT
  Age: 40 Year
  Sex: Female
  Weight: 71 kg

DRUGS (1)
  1. VIOXX [Suspect]
     Indication: BACK PAIN
     Route: 048
     Dates: start: 19990801, end: 20010701

REACTIONS (21)
  - ANGINA PECTORIS [None]
  - ANGIOPATHY [None]
  - ANXIETY [None]
  - ARRHYTHMIA [None]
  - ASTHMA [None]
  - CARDIOVASCULAR DISORDER [None]
  - CEREBELLAR INFARCTION [None]
  - CEREBROVASCULAR ACCIDENT [None]
  - CHEST PAIN [None]
  - DEPRESSION [None]
  - DIABETES MELLITUS [None]
  - HAEMORRHAGIC CEREBRAL INFARCTION [None]
  - HYPERTENSION [None]
  - MYELITIS TRANSVERSE [None]
  - MYOCARDIAL INFARCTION [None]
  - ORGAN FAILURE [None]
  - PULMONARY EMBOLISM [None]
  - RETINAL DETACHMENT [None]
  - RETINAL HAEMORRHAGE [None]
  - RETINOPATHY [None]
  - THROMBOSIS [None]
